FAERS Safety Report 21543787 (Version 2)
Quarter: 2022Q4

REPORT INFORMATION
  Report Type: Report from Study
  Country: CA (occurrence: CA)
  Receive Date: 20221102
  Receipt Date: 20221117
  Transmission Date: 20230112
  Serious: Yes (Hospitalization)
  Sender: FDA-Public Use
  Company Number: CA-GILEAD-2022-0603513

PATIENT
  Sex: Female

DRUGS (9)
  1. SACITUZUMAB GOVITECAN [Suspect]
     Active Substance: SACITUZUMAB GOVITECAN
     Indication: Product used for unknown indication
     Dosage: 524 MG
     Route: 042
     Dates: start: 20221006
  2. SACITUZUMAB GOVITECAN [Suspect]
     Active Substance: SACITUZUMAB GOVITECAN
     Dosage: 75% OF 10MG/KG, DAY 1
     Route: 042
     Dates: start: 20221108
  3. ADRIAMYCIN [Concomitant]
     Active Substance: DOXORUBICIN HYDROCHLORIDE
  4. CYCLOPHOSPHAMIDE [Concomitant]
     Active Substance: CYCLOPHOSPHAMIDE
  5. CARBOPLATIN;DOCETAXEL [Concomitant]
  6. CARBOPLATIN [Concomitant]
     Active Substance: CARBOPLATIN
  7. TAXOTERE [Concomitant]
     Active Substance: DOCETAXEL
  8. CYCLOPHOSPHAMIDE\DOXORUBICIN [Concomitant]
     Active Substance: CYCLOPHOSPHAMIDE\DOXORUBICIN
  9. ERIBULIN [Concomitant]
     Active Substance: ERIBULIN

REACTIONS (1)
  - COVID-19 [Unknown]
